FAERS Safety Report 6868708-6 (Version None)
Quarter: 2010Q3

REPORT INFORMATION
  Report Type: 
  Country: None (occurrence: None)
  Receive Date: 20100722
  Receipt Date: 20080608
  Transmission Date: 20110219
  Serious: No
  Sender: FDA-Public Use
  Company Number: US-PFIZER INC-2008048789

PATIENT
  Sex: Male
  Weight: 124.74 kg

DRUGS (8)
  1. CHANTIX [Suspect]
     Indication: SMOKING CESSATION THERAPY
     Dosage: EVERY DAY
     Dates: start: 20060501
  2. OMEPRAZOLE [Concomitant]
  3. DYAZIDE [Concomitant]
     Indication: HYPERTENSION
  4. SIMVASTATIN [Concomitant]
     Indication: BLOOD CHOLESTEROL INCREASED
  5. PAROXETINE HCL [Concomitant]
  6. AMLODIPINE [Concomitant]
     Indication: HYPERTENSION
  7. TAMSULOSIN HYDROCHLORIDE [Concomitant]
     Indication: PROSTATOMEGALY
     Dates: start: 20080601
  8. IBUPROFEN [Concomitant]
     Indication: ARTHRITIS

REACTIONS (1)
  - NAUSEA [None]
